FAERS Safety Report 10172190 (Version 2)
Quarter: 2014Q2

REPORT INFORMATION
  Report Type: Report from Study
  Country: US (occurrence: US)
  Receive Date: 20140515
  Receipt Date: 20140515
  Transmission Date: 20141212
  Serious: Yes (Other)
  Sender: FDA-Public Use
  Company Number: PHEH2014US007289

PATIENT
  Age: 16 Year
  Sex: Male

DRUGS (9)
  1. AFINITOR [Suspect]
     Indication: BRAIN NEOPLASM BENIGN
     Dosage: 2.5 MG, DAILY
     Route: 048
     Dates: start: 20140210, end: 20140327
  2. CLONIDINE [Concomitant]
  3. LAMICTAL [Concomitant]
  4. PEPCID [Concomitant]
  5. SEROQUEL [Concomitant]
  6. ZYPREXA [Concomitant]
  7. TRAZODONE [Concomitant]
  8. HALDOL [Concomitant]
  9. CYPROHEPTADINE [Concomitant]

REACTIONS (1)
  - Blood potassium increased [Recovered/Resolved]
